FAERS Safety Report 11552619 (Version 2)
Quarter: 2015Q4

REPORT INFORMATION
  Report Type: Spontaneous
  Country: DE (occurrence: DE)
  Receive Date: 20150925
  Receipt Date: 20151015
  Transmission Date: 20160304
  Serious: Yes (Hospitalization, Disabling)
  Sender: FDA-Public Use
  Company Number: DE-ACCORD-033879

PATIENT
  Age: 76 Year
  Sex: Female

DRUGS (1)
  1. ACCORD CISPLAITN [Suspect]
     Active Substance: CISPLATIN
     Indication: BRONCHIAL CARCINOMA
     Dosage: PT.ALSO RECEIVED CISPLATIN ON 07-JUL-2015 AND 3RD ADMINISTRATION ON 28-JUL-2015
     Dates: start: 20150707

REACTIONS (1)
  - Urosepsis [Recovered/Resolved]

NARRATIVE: CASE EVENT DATE: 20150809
